FAERS Safety Report 6162188-4 (Version None)
Quarter: 2009Q2

REPORT INFORMATION
  Report Type: 
  Country: None (occurrence: None)
  Receive Date: 20090421
  Receipt Date: 20090414
  Transmission Date: 20091009
  Serious: Yes (Other)
  Sender: FDA-Public Use
  Company Number: US-TEVA-191522USA

PATIENT
  Age: 34 Year
  Sex: Male

DRUGS (11)
  1. BLEOMYCIN SULFATE 15 UNITS/10 ML AND 30 UNITS/20ML [Suspect]
     Indication: HODGKIN'S DISEASE
  2. CARBOPLATIN [Suspect]
     Indication: HODGKIN'S DISEASE
  3. DACARBAZINE [Suspect]
     Indication: HODGKIN'S DISEASE
  4. DOXORUBICIN HCL [Suspect]
     Indication: HODGKIN'S DISEASE
  5. ETOPOSIDE [Suspect]
     Indication: HODGKIN'S DISEASE
  6. IFOSFAMIDE [Suspect]
     Indication: HODGKIN'S DISEASE
  7. CHLORMETHINE HYDROCHLORIDE [Suspect]
     Indication: HODGKIN'S DISEASE
  8. VINCRISTINE SULFATE [Suspect]
     Indication: HODGKIN'S DISEASE
  9. PROCARBAZINE [Suspect]
     Indication: HODGKIN'S DISEASE
  10. VINBLASTINE [Suspect]
     Indication: HODGKIN'S DISEASE
  11. PREDNISONE [Concomitant]
     Indication: HODGKIN'S DISEASE

REACTIONS (1)
  - ACUTE LYMPHOCYTIC LEUKAEMIA [None]
